FAERS Safety Report 4294568-6 (Version None)
Quarter: 2004Q1

REPORT INFORMATION
  Report Type: 
  Country: None (occurrence: None)
  Receive Date: 20040211
  Receipt Date: 20040128
  Transmission Date: 20041129
  Serious: No
  Sender: FDA-Public Use
  Company Number: 2004AP00537

PATIENT
  Age: 53 Year
  Sex: Female

DRUGS (3)
  1. DIPRIVAN [Suspect]
     Indication: GENERAL ANAESTHESIA
     Dosage: DIPRIFUSOR TCI PUMP USED
     Dates: start: 20030717, end: 20030717
  2. FENTANYL [Concomitant]
  3. VECURONIUM BROMIDE [Concomitant]

REACTIONS (6)
  - ACIDOSIS [None]
  - BIOPSY MUSCLE ABNORMAL [None]
  - BLOOD PRESSURE INCREASED [None]
  - HEART RATE INCREASED [None]
  - HYPERTHERMIA MALIGNANT [None]
  - STRESS SYMPTOMS [None]
